FAERS Safety Report 16073343 (Version 1)
Quarter: 2019Q1

REPORT INFORMATION
  Report Type: Spontaneous
  Country: US (occurrence: US)
  Receive Date: 20190314
  Receipt Date: 20190314
  Transmission Date: 20190418
  Serious: No
  Sender: FDA-Public Use
  Company Number: US-MIKART, INC.-2063995

PATIENT
  Age: 90 Year
  Sex: Male
  Weight: 109.09 kg

DRUGS (3)
  1. LYRICA [Concomitant]
     Active Substance: PREGABALIN
     Route: 048
  2. OTHER UNSPECIFIED CONCOMITANT MEDICATIONS [Concomitant]
  3. HYDROCODONE BITARTRATE AND ACETAMINOPHEN [Suspect]
     Active Substance: ACETAMINOPHEN\HYDROCODONE BITARTRATE
     Indication: BREAKTHROUGH PAIN
     Route: 048
     Dates: start: 201802

REACTIONS (1)
  - Feeling abnormal [Unknown]
